FAERS Safety Report 21408343 (Version 2)
Quarter: 2022Q4

REPORT INFORMATION
  Report Type: Spontaneous
  Country: FR (occurrence: FR)
  Receive Date: 20221004
  Receipt Date: 20221014
  Transmission Date: 20230113
  Serious: Yes (Hospitalization, Other)
  Sender: FDA-Public Use
  Company Number: FR-TAKEDA-2022TUS068576

PATIENT
  Age: 69 Year
  Sex: Male
  Weight: 88 kg

DRUGS (2)
  1. ENTYVIO [Suspect]
     Active Substance: VEDOLIZUMAB
     Indication: Colitis ulcerative
     Dosage: 300 MILLIGRAM
     Route: 042
     Dates: start: 20220505, end: 20220830
  2. ENTYVIO [Suspect]
     Active Substance: VEDOLIZUMAB
     Indication: Enterocolitis haemorrhagic

REACTIONS (5)
  - Ventricular tachycardia [Unknown]
  - Arrhythmia [Unknown]
  - Cardiac arrest [Unknown]
  - Cardiac failure [Unknown]
  - Myocardial infarction [Unknown]

NARRATIVE: CASE EVENT DATE: 20220625
